FAERS Safety Report 8300311-3 (Version None)
Quarter: 2012Q2

REPORT INFORMATION
  Report Type: 
  Country: None (occurrence: None)
  Receive Date: 20120420
  Receipt Date: 20120405
  Transmission Date: 20120825
  Serious: Yes (Death)
  Sender: FDA-Public Use
  Company Number: GR-PFIZER INC-2011017288

PATIENT
  Age: 71 Year
  Sex: Male
  Weight: 111.5 kg

DRUGS (2)
  1. EPLERENONE [Suspect]
     Indication: CARDIAC FAILURE CHRONIC
     Dosage: 25 MG, 1X/DAY
     Route: 048
     Dates: start: 20101020, end: 20101116
  2. EPLERENONE [Suspect]
     Dosage: 50 MG, 1X/DAY
     Route: 048
     Dates: start: 20101117

REACTIONS (1)
  - DEATH [None]
